FAERS Safety Report 24928585 (Version 1)
Quarter: 2025Q1

REPORT INFORMATION
  Report Type: Spontaneous
  Country: US (occurrence: None)
  Receive Date: 20250204
  Receipt Date: 20250204
  Transmission Date: 20250409
  Serious: Yes (Life-Threatening, Hospitalization, Disabling)
  Sender: FDA-CTU
  Company Number: None

PATIENT
  Age: 59 Year
  Sex: Female
  Weight: 123.75 kg

DRUGS (1)
  1. BIVIGAM [Suspect]
     Active Substance: HUMAN IMMUNOGLOBULIN G
     Indication: Myasthenia gravis
     Route: 042
     Dates: start: 20250120, end: 20250120

REACTIONS (5)
  - Infusion related reaction [None]
  - Urticaria [None]
  - Pruritus [None]
  - Swelling [None]
  - Chest discomfort [None]

NARRATIVE: CASE EVENT DATE: 20250120
